FAERS Safety Report 12560236 (Version 2)
Quarter: 2016Q4

REPORT INFORMATION
  Report Type: Spontaneous
  Country: US (occurrence: US)
  Receive Date: 20160715
  Receipt Date: 20161004
  Transmission Date: 20170207
  Serious: No
  Sender: FDA-Public Use
  Company Number: US-JNJFOC-20160621850

PATIENT
  Age: 69 Year
  Sex: Female
  Weight: 60.33 kg

DRUGS (13)
  1. SIMVASTATIN. [Concomitant]
     Active Substance: SIMVASTATIN
     Indication: BLOOD CHOLESTEROL INCREASED
     Route: 065
  2. KLONOPIN [Concomitant]
     Active Substance: CLONAZEPAM
     Indication: INSOMNIA
     Dosage: 1X PER NIGHT
     Route: 065
  3. WOMENS ROGAINE UNSCENTED [Suspect]
     Active Substance: MINOXIDIL
     Indication: ANDROGENETIC ALOPECIA
     Dosage: AROUND A HALF CAPFUL
     Route: 061
     Dates: start: 20160615, end: 20160813
  4. WOMENS ROGAINE UNSCENTED [Suspect]
     Active Substance: MINOXIDIL
     Indication: ALOPECIA
     Dosage: AROUND A HALF CAPFUL
     Route: 061
     Dates: start: 20160615, end: 20160813
  5. COENZYME Q10 [Concomitant]
     Active Substance: UBIDECARENONE
     Indication: SUPPLEMENTATION THERAPY
     Route: 065
  6. PREMARIN [Concomitant]
     Active Substance: ESTROGENS, CONJUGATED
     Indication: SUPPLEMENTATION THERAPY
     Dosage: PRN
     Route: 065
  7. MULTIVITAMINS [Concomitant]
     Active Substance: VITAMINS
     Indication: SUPPLEMENTATION THERAPY
     Dosage: 1X PER DAY
     Route: 065
  8. VITAMIN D [Concomitant]
     Active Substance: CHOLECALCIFEROL
     Indication: VITAMIN D DEFICIENCY
     Route: 065
  9. FISH OIL [Concomitant]
     Active Substance: FISH OIL
     Indication: SUPPLEMENTATION THERAPY
     Route: 065
  10. FLONASE [Concomitant]
     Active Substance: FLUTICASONE PROPIONATE
     Indication: SEASONAL ALLERGY
     Dosage: 1 SPRAY PRN
     Route: 065
  11. BIOTIN [Concomitant]
     Active Substance: BIOTIN
     Indication: SUPPLEMENTATION THERAPY
     Route: 065
  12. PROBIOTICS NOS [Concomitant]
     Active Substance: PROBIOTICS NOS
     Indication: SUPPLEMENTATION THERAPY
     Dosage: 200 MG, 1 EVERY OTHER DAY
     Route: 065
  13. KERYDIN [Concomitant]
     Active Substance: TAVABOROLE
     Indication: SUPPLEMENTATION THERAPY
     Route: 065

REACTIONS (6)
  - Feeling hot [Recovered/Resolved]
  - Product use issue [Recovered/Resolved]
  - Peripheral swelling [Recovered/Resolved]
  - Off label use [Recovered/Resolved]
  - Erythema [Recovered/Resolved]
  - Drug administered at inappropriate site [Recovered/Resolved]

NARRATIVE: CASE EVENT DATE: 20160615
